FAERS Safety Report 6451748-9 (Version None)
Quarter: 2009Q4

REPORT INFORMATION
  Report Type: 
  Country: None (occurrence: None)
  Receive Date: 20091123
  Receipt Date: 20091112
  Transmission Date: 20100525
  Serious: Yes (Other)
  Sender: FDA-Public Use
  Company Number: JP-PFIZER INC-2009298289

PATIENT
  Sex: Female

DRUGS (2)
  1. REVATIO [Suspect]
     Indication: PULMONARY HYPERTENSION
     Dosage: UNK
     Route: 048
  2. BOSENTAN [Concomitant]

REACTIONS (1)
  - VISUAL ACUITY REDUCED [None]
